FAERS Safety Report 25747469 (Version 1)
Quarter: 2025Q3

REPORT INFORMATION
  Report Type: Report from Study
  Country: US (occurrence: US)
  Receive Date: 20250901
  Receipt Date: 20250901
  Transmission Date: 20251020
  Serious: Yes (Other)
  Sender: ABBVIE
  Company Number: US-ABBVIE-6435307

PATIENT
  Age: 83 Year
  Sex: Male

DRUGS (1)
  1. IMBRUVICA [Suspect]
     Active Substance: IBRUTINIB
     Indication: Product used for unknown indication
     Dosage: MEDICATION ADMINISTERED WITH A DROPPER
     Route: 048
     Dates: start: 20250813

REACTIONS (1)
  - Product use complaint [Not Recovered/Not Resolved]

NARRATIVE: CASE EVENT DATE: 20250824
